FAERS Safety Report 14981365 (Version 1)
Quarter: 2018Q2

REPORT INFORMATION
  Report Type: Spontaneous
  Country: US (occurrence: US)
  Receive Date: 20180606
  Receipt Date: 20180606
  Transmission Date: 20180711
  Serious: No
  Sender: FDA-Public Use
  Company Number: US-009507513-1805USA003903

PATIENT
  Age: 20 Year
  Sex: Female
  Weight: 97.51 kg

DRUGS (1)
  1. NEXPLANON [Suspect]
     Active Substance: ETONOGESTREL
     Indication: CONTRACEPTION
     Dosage: 1 DF, UNK
     Route: 059
     Dates: start: 20180312, end: 20180502

REACTIONS (5)
  - Implant site inflammation [Recovering/Resolving]
  - Purulence [Recovering/Resolving]
  - Implant site infection [Recovering/Resolving]
  - Implant site induration [Recovering/Resolving]
  - Device expulsion [Recovering/Resolving]

NARRATIVE: CASE EVENT DATE: 20180430
